FAERS Safety Report 24335274 (Version 1)
Quarter: 2024Q3

REPORT INFORMATION
  Report Type: Report from Study
  Country: US (occurrence: US)
  Receive Date: 20240918
  Receipt Date: 20240918
  Transmission Date: 20241017
  Serious: Yes (Other)
  Sender: ABBVIE
  Company Number: US-ABBVIE-5817410

PATIENT
  Sex: Female

DRUGS (2)
  1. HUMIRA [Suspect]
     Active Substance: ADALIMUMAB
     Indication: Rheumatoid arthritis
     Dosage: FORM STRENGTH:40 MG, CITRATE FREE
     Route: 058
     Dates: start: 20210505, end: 2024
  2. HUMIRA [Suspect]
     Active Substance: ADALIMUMAB
     Dosage: CITRATE FREE, FORM STRENGTH:40 MG
     Route: 058
     Dates: start: 20200101

REACTIONS (6)
  - Sinus operation [Recovered/Resolved]
  - Illness [Recovered/Resolved]
  - Nasal disorder [Unknown]
  - Pyrexia [Unknown]
  - Nasal congestion [Unknown]
  - Productive cough [Unknown]

NARRATIVE: CASE EVENT DATE: 20210101
